FAERS Safety Report 17006637 (Version 1)
Quarter: 2019Q4

REPORT INFORMATION
  Report Type: Spontaneous
  Country: US (occurrence: US)
  Receive Date: 20191107
  Receipt Date: 20191107
  Transmission Date: 20200122
  Serious: Yes (Death, Hospitalization)
  Sender: FDA-Public Use
  Company Number: US-JNJFOC-20191100630

PATIENT
  Age: 53 Year
  Sex: Male

DRUGS (13)
  1. DOXEPIN [Concomitant]
     Active Substance: DOXEPIN
  2. REXULTI [Concomitant]
     Active Substance: BREXPIPRAZOLE
  3. ZYPREXA [Concomitant]
     Active Substance: OLANZAPINE
  4. REMERON [Concomitant]
     Active Substance: MIRTAZAPINE
  5. VIIBRYD [Concomitant]
     Active Substance: VILAZODONE HYDROCHLORIDE
  6. LITHIUM. [Concomitant]
     Active Substance: LITHIUM
  7. LISINOPRIL. [Concomitant]
     Active Substance: LISINOPRIL
  8. ASPRIN [Concomitant]
     Active Substance: ASPIRIN
     Dosage: LOW DOSE
  9. PROZAC [Concomitant]
     Active Substance: FLUOXETINE HYDROCHLORIDE
  10. PROPRANOLOL [Concomitant]
     Active Substance: PROPRANOLOL HYDROCHLORIDE
     Indication: TREMOR
  11. SPRAVATO [Suspect]
     Active Substance: ESKETAMINE
     Indication: DEPRESSION
     Dates: start: 20191007
  12. SEROQUEL [Concomitant]
     Active Substance: QUETIAPINE FUMARATE
     Indication: SLEEP DISORDER
  13. ABILIFY [Concomitant]
     Active Substance: ARIPIPRAZOLE

REACTIONS (1)
  - Pulmonary embolism [Fatal]

NARRATIVE: CASE EVENT DATE: 20191016
